FAERS Safety Report 10039590 (Version 2)
Quarter: 2014Q1

REPORT INFORMATION
  Report Type: Spontaneous
  Country: US (occurrence: US)
  Receive Date: 20140326
  Receipt Date: 20140326
  Transmission Date: 20141002
  Serious: Yes (Hospitalization)
  Sender: FDA-Public Use
  Company Number: US-PFIZER INC-2013293201

PATIENT
  Age: 70 Year
  Sex: Male
  Weight: 106 kg

DRUGS (3)
  1. LYRICA [Suspect]
     Indication: NEURALGIA
     Dosage: 150 MG, 3X/DAY
     Dates: start: 2012
  2. LYRICA [Suspect]
     Indication: FIBROMYALGIA
  3. NORVASC [Concomitant]
     Dosage: 10 MG, UNK

REACTIONS (3)
  - Joint injury [Unknown]
  - Limb injury [Unknown]
  - Rotator cuff syndrome [Unknown]
